FAERS Safety Report 4767861-8 (Version None)
Quarter: 2005Q3

REPORT INFORMATION
  Report Type: 
  Country: None (occurrence: None)
  Receive Date: 20050913
  Receipt Date: 20050816
  Transmission Date: 20060218
  Serious: Yes (Death, Hospitalization)
  Sender: FDA-Public Use
  Company Number: 2005-08-1360

PATIENT
  Age: 72 Year
  Sex: Male
  Weight: 82 kg

DRUGS (5)
  1. METHOTREXATE [Suspect]
     Indication: CENTRAL NERVOUS SYSTEM LYMPHOMA
     Dosage: 7 GM * INTRAVENOUS
     Route: 042
     Dates: start: 20050313, end: 20050313
  2. METHOTREXATE [Suspect]
     Indication: CENTRAL NERVOUS SYSTEM LYMPHOMA
     Dosage: 7 GM * INTRAVENOUS
     Route: 042
     Dates: start: 20050326, end: 20050326
  3. INTENT TO TREAT - TEMOZOLOMIDE STUDY CAPSULES [Suspect]
     Indication: CENTRAL NERVOUS SYSTEM LYMPHOMA
     Dosage: ORAL
     Route: 048
  4. RITUXAN [Concomitant]
  5. RADIATION THERAPY [Concomitant]

REACTIONS (5)
  - DEPRESSED LEVEL OF CONSCIOUSNESS [None]
  - LETHARGY [None]
  - METABOLIC ENCEPHALOPATHY [None]
  - MUSCLE TWITCHING [None]
  - RENAL FAILURE ACUTE [None]
